FAERS Safety Report 7778518-3 (Version None)
Quarter: 2011Q3

REPORT INFORMATION
  Report Type: 
  Country: None (occurrence: None)
  Receive Date: 20110926
  Receipt Date: 20110920
  Transmission Date: 20111222
  Serious: Yes (Death, Other)
  Sender: FDA-Public Use
  Company Number: DE-BAYER-2011-087968

PATIENT
  Age: 87 Year
  Sex: Male
  Weight: 80 kg

DRUGS (3)
  1. CIPROFLOXACIN [Suspect]
     Indication: PNEUMONIA
     Dosage: 250 MG, BID
     Route: 048
     Dates: start: 20110902
  2. CIPROFLOXACIN [Suspect]
     Indication: URINARY TRACT INFECTION
  3. PANTOPRAZOLE [Concomitant]
     Indication: GASTRITIS
     Dosage: 40 MG, UNK
     Route: 048
     Dates: start: 20110801

REACTIONS (3)
  - JAUNDICE [None]
  - RENAL FAILURE [None]
  - HEPATIC FAILURE [None]
